FAERS Safety Report 7443558-0 (Version None)
Quarter: 2011Q2

REPORT INFORMATION
  Report Type: 
  Country: None (occurrence: None)
  Receive Date: 20110419
  Receipt Date: 20110407
  Transmission Date: 20111010
  Serious: Yes (Death, Other)
  Sender: FDA-Public Use
  Company Number: 2011MA003673

PATIENT
  Age: 31 Year
  Sex: Female

DRUGS (2)
  1. DIAZEPAM [Suspect]
     Indication: PRODUCT USED FOR UNKNOWN INDICATION
     Dosage: 1 DF; QD;
     Dates: start: 19990101
  2. DIHYDROCODEINE BITARTRATE INJ [Suspect]
     Indication: PAIN IN EXTREMITY
     Dosage: 120 MG; QID;

REACTIONS (2)
  - COMPLETED SUICIDE [None]
  - DRUG DEPENDENCE [None]
